FAERS Safety Report 5170183-7 (Version None)
Quarter: 2006Q4

REPORT INFORMATION
  Report Type: 
  Country: None (occurrence: None)
  Receive Date: 20061212
  Receipt Date: 20061130
  Transmission Date: 20070319
  Serious: Yes (Hospitalization)
  Sender: FDA-Public Use
  Company Number: US-ROCHE-473422

PATIENT
  Age: 65 Year
  Sex: Female
  Weight: 66.2 kg

DRUGS (7)
  1. BONIVA [Suspect]
     Route: 048
     Dates: start: 20050915, end: 20061015
  2. COUMADIN [Suspect]
     Indication: THROMBOSIS PROPHYLAXIS
     Route: 048
  3. AMARYL [Concomitant]
     Route: 048
  4. MONOPRIL [Concomitant]
     Indication: HYPERTENSION
     Route: 048
  5. VYTORIN [Concomitant]
     Dosage: WAS STOPPED ON AN UNKNOWN DATE AND RESTARTED IN OCTOBER 2006.
     Dates: start: 20060215
  6. LASIX [Concomitant]
     Dates: start: 20060215, end: 20061101
  7. CARVEDILOL [Concomitant]
     Dosage: WAS STOPPED ON AN UNKNOWN DATE AND RESTARTED IN OCTOBER 2006.
     Dates: start: 20060215

REACTIONS (9)
  - ATRIOVENTRICULAR BLOCK [None]
  - BLOOD CHOLESTEROL INCREASED [None]
  - DRUG LEVEL FLUCTUATING [None]
  - JOINT SWELLING [None]
  - MALIGNANT MELANOMA [None]
  - NAUSEA [None]
  - OEDEMA PERIPHERAL [None]
  - SKIN CANCER [None]
  - VOMITING [None]
